FAERS Safety Report 6882308-3 (Version None)
Quarter: 2010Q3

REPORT INFORMATION
  Report Type: 
  Country: None (occurrence: None)
  Receive Date: 20100729
  Receipt Date: 20090721
  Transmission Date: 20110219
  Serious: No
  Sender: FDA-Public Use
  Company Number: US-MYLANLABS-2009S1013056

PATIENT
  Age: 11 Year
  Sex: Female
  Weight: 63.5 kg

DRUGS (1)
  1. LEVOTHYROXINE SODIUM [Suspect]
     Indication: HYPOTHYROIDISM
     Route: 048
     Dates: start: 20090401, end: 20090401

REACTIONS (6)
  - ERYTHEMA [None]
  - FATIGUE [None]
  - OEDEMA [None]
  - PAIN [None]
  - SWELLING FACE [None]
  - VIRAL INFECTION [None]
